FAERS Safety Report 10967924 (Version 1)
Quarter: 2015Q1

REPORT INFORMATION
  Report Type: Report from Study
  Country: JP (occurrence: JP)
  Receive Date: 20150330
  Receipt Date: 20150330
  Transmission Date: 20150721
  Serious: Yes (Hospitalization, Other)
  Sender: FDA-Public Use
  Company Number: JP-BAYER-2015-026787

PATIENT
  Age: 81 Year
  Sex: Female
  Weight: 50 kg

DRUGS (18)
  1. ADEMPAS [Suspect]
     Active Substance: RIOCIGUAT
     Indication: PULMONARY HYPERTENSION
     Dosage: 1.5 MG, UNK
     Route: 048
     Dates: start: 20141104, end: 20141203
  2. WARFARIN POTASSIUM [Concomitant]
     Active Substance: WARFARIN POTASSIUM
     Dosage: DAILY DOSE 3.25 MG
     Route: 048
     Dates: start: 20141114, end: 20150108
  3. MEVALOTIN [Concomitant]
     Active Substance: PRAVASTATIN SODIUM
     Dosage: DAILY DOSE 10 MG
     Route: 048
  4. DECADRON [Concomitant]
     Active Substance: DEXAMETHASONE
     Indication: PROPHYLAXIS
     Dosage: DAILY DOSE 6.5999999 MG
     Dates: start: 20141120, end: 20141120
  5. FUTHAN [Concomitant]
     Active Substance: NAFAMOSTAT MESYLATE
     Indication: PROPHYLAXIS
     Dosage: DAILY DOSE 20 MG
     Dates: start: 20141030, end: 20141030
  6. ADEMPAS [Suspect]
     Active Substance: RIOCIGUAT
     Indication: PULMONARY HYPERTENSION
     Dosage: 4.5 MG, UNK
     Route: 048
     Dates: start: 20141204, end: 20141224
  7. WARFARIN POTASSIUM [Concomitant]
     Active Substance: WARFARIN POTASSIUM
     Dosage: DAILY DOSE 3 MG
     Route: 048
     Dates: end: 20141028
  8. DECADRON [Concomitant]
     Active Substance: DEXAMETHASONE
     Indication: PROPHYLAXIS
     Dosage: DAILY DOSE 6.5999999 MG
     Dates: start: 20141204, end: 20141204
  9. CEFON [Concomitant]
     Active Substance: CEFOPERAZONE SODIUM\SULBACTAM SODIUM
     Indication: PROPHYLAXIS
     Dosage: DAILY DOSE 2 MG
     Dates: start: 20141030, end: 20141030
  10. WARFARIN POTASSIUM [Concomitant]
     Active Substance: WARFARIN POTASSIUM
     Dosage: DAILY DOSE 3 MG
     Route: 048
     Dates: start: 20150109
  11. NORVASC [Concomitant]
     Active Substance: AMLODIPINE BESYLATE
     Dosage: DAILY DOSE 5 MG
     Route: 048
  12. ADEMPAS [Suspect]
     Active Substance: RIOCIGUAT
     Indication: PULMONARY HYPERTENSION
     Dosage: 6 MG, TID
     Route: 048
     Dates: start: 20141225, end: 20150115
  13. WARFARIN POTASSIUM [Concomitant]
     Active Substance: WARFARIN POTASSIUM
     Dosage: DAILY DOSE 3 MG
     Route: 048
     Dates: start: 20141031, end: 20141113
  14. UNFRACTIONATED HEPARIN [Concomitant]
     Active Substance: HEPARIN SODIUM
     Dosage: DAILY DOSE 10000 IU
     Dates: start: 20141029, end: 20141030
  15. ADEMPAS [Suspect]
     Active Substance: RIOCIGUAT
     Indication: PULMONARY HYPERTENSION
     Dosage: 1.5 MG, TID
     Route: 048
     Dates: start: 20140927, end: 20141014
  16. PROCYLIN [Concomitant]
     Active Substance: BERAPROST SODIUM
     Dosage: DAILY DOSE 180 ?G
     Route: 048
  17. DECADRON [Concomitant]
     Active Substance: DEXAMETHASONE
     Indication: PROPHYLAXIS
     Dosage: DAILY DOSE 6.5999999 MG
     Dates: start: 20141127, end: 20141127
  18. DIOVAN [Concomitant]
     Active Substance: VALSARTAN
     Dosage: DAILY DOSE 80 MG
     Route: 048

REACTIONS (5)
  - International normalised ratio increased [Recovered/Resolved]
  - Hepatic enzyme increased [Recovering/Resolving]
  - Pancreatic carcinoma [Recovering/Resolving]
  - Oedema peripheral [Recovering/Resolving]
  - Decreased appetite [Recovered/Resolved]

NARRATIVE: CASE EVENT DATE: 20141014
